FAERS Safety Report 4433245-5 (Version None)
Quarter: 2004Q3

REPORT INFORMATION
  Report Type: 
  Country: None (occurrence: None)
  Receive Date: 20040824
  Receipt Date: 20040820
  Transmission Date: 20050211
  Serious: Yes (Death)
  Sender: FDA-Public Use
  Company Number: 04-07-1117

PATIENT
  Age: 80 Year
  Sex: Male

DRUGS (1)
  1. CLOZAPINE [Suspect]
     Dosage: 200-300 MG QD ORAL
     Route: 048
     Dates: start: 20040101, end: 20040701

REACTIONS (1)
  - CARDIAC FAILURE [None]
